FAERS Safety Report 5109706-2 (Version None)
Quarter: 2006Q3

REPORT INFORMATION
  Report Type: 
  Country: None (occurrence: None)
  Receive Date: 20060918
  Receipt Date: 20060831
  Transmission Date: 20061208
  Serious: Yes (Hospitalization)
  Sender: FDA-Public Use
  Company Number: FR200608006763

PATIENT
  Age: 75 Year
  Sex: Male

DRUGS (4)
  1. ALIMTA [Suspect]
     Indication: SQUAMOUS CELL CARCINOMA
     Dosage: 500 MG/M2, OTHER, INTRAVENOUS
     Route: 042
     Dates: start: 20060428, end: 20060519
  2. MEDROL ACETATE [Concomitant]
  3. TEGRETOL [Concomitant]
  4. ZESTORETIC [Concomitant]

REACTIONS (2)
  - DERMATITIS PSORIASIFORM [None]
  - TOXIC SKIN ERUPTION [None]
